FAERS Safety Report 26095556 (Version 1)
Quarter: 2025Q4

REPORT INFORMATION
  Report Type: Report from Study
  Country: CA (occurrence: CA)
  Receive Date: 20251127
  Receipt Date: 20251127
  Transmission Date: 20260118
  Serious: Yes (Other)
  Sender: TEVA
  Company Number: CA-TEVA-VS-3396653

PATIENT
  Sex: Female
  Weight: 79 kg

DRUGS (4)
  1. PREDNISONE [Suspect]
     Active Substance: PREDNISONE
     Indication: Arthritis
     Dosage: DOSE FORM: NOT SPECIFIED
     Route: 065
  2. ROSUVASTATIN [Suspect]
     Active Substance: ROSUVASTATIN
     Indication: Blood cholesterol abnormal
     Dosage: DOSE FORM: NOT SPECIFIED
     Route: 058
  3. TYLENOL [Suspect]
     Active Substance: ACETAMINOPHEN
     Indication: Pain
     Dosage: DOSE FORM: NOT SPECIFIED
     Route: 065
  4. RENFLEXIS [Suspect]
     Active Substance: INFLIXIMAB-ABDA
     Indication: Colitis ulcerative
     Dosage: DOSE FORM: POWDER FOR SOLUTION INTRAVENOUS, RENFLEXIS SINGLE USE VIAL
     Route: 042

REACTIONS (3)
  - Colitis [Not Recovered/Not Resolved]
  - Night sweats [Not Recovered/Not Resolved]
  - Arthritis [Not Recovered/Not Resolved]
